FAERS Safety Report 6445387-3 (Version None)
Quarter: 2009Q4

REPORT INFORMATION
  Report Type: 
  Country: None (occurrence: None)
  Receive Date: 20091118
  Receipt Date: 20091105
  Transmission Date: 20100525
  Serious: Yes (Other)
  Sender: FDA-Public Use
  Company Number: PHEH2009US15259

PATIENT
  Sex: Female

DRUGS (10)
  1. RECLAST [Suspect]
     Dosage: UNK, UNK
     Dates: start: 20090925, end: 20090925
  2. BONIVA [Suspect]
     Dosage: 150 MG, UNK
  3. CARVEDILOL [Concomitant]
     Dosage: 25 MG, UNK
  4. LISINOPRIL [Concomitant]
     Dosage: 5 MG, UNK
  5. MIRAPEX [Concomitant]
     Dosage: 0.25 MG, UNK
  6. LEVOTHYROXINE SODIUM [Concomitant]
     Dosage: 150 MCG, UNK
  7. PHENYTOIN SODIUM [Concomitant]
     Dosage: 100 MG, UNK
  8. VERAPAMIL [Concomitant]
     Dosage: 180 MG, UNK
  9. VESICARE [Concomitant]
     Dosage: 5 MG, UNK
  10. PRILOSEC [Concomitant]
     Dosage: 20 MG, UNK

REACTIONS (2)
  - NAUSEA [None]
  - UPPER LIMB FRACTURE [None]
